FAERS Safety Report 24809457 (Version 1)
Quarter: 2025Q1

REPORT INFORMATION
  Report Type: Spontaneous
  Country: US (occurrence: None)
  Receive Date: 20250103
  Receipt Date: 20250103
  Transmission Date: 20250408
  Serious: Yes (Other)
  Sender: FDA-CTU
  Company Number: None

PATIENT
  Age: 28 Day
  Sex: Male
  Weight: 5.75 kg

DRUGS (4)
  1. PROGESTERONE [Suspect]
     Active Substance: PROGESTERONE
     Dates: start: 20191106
  2. PROGESTERONE [Suspect]
     Active Substance: PROGESTERONE
     Dates: start: 20191106
  3. VORTIOXETINE [Suspect]
     Active Substance: VORTIOXETINE
     Dates: start: 20191106
  4. BUPROPION [Suspect]
     Active Substance: BUPROPION
     Dates: start: 20191106

REACTIONS (5)
  - Umbilical hernia [None]
  - Pectus excavatum [None]
  - Hypotonia [None]
  - Maternal drugs affecting foetus [None]
  - Exposure during pregnancy [None]

NARRATIVE: CASE EVENT DATE: 20200815
